FAERS Safety Report 5075425-4 (Version None)
Quarter: 2006Q3

REPORT INFORMATION
  Report Type: 
  Country: None (occurrence: None)
  Receive Date: 20060804
  Receipt Date: 20060725
  Transmission Date: 20061208
  Serious: Yes (Death)
  Sender: FDA-Public Use
  Company Number: 2006-DE-03943GD

PATIENT

DRUGS (11)
  1. MORPHINE SULFATE [Suspect]
     Indication: PROCEDURAL PAIN
     Dosage: SEE IMAGE
  2. ROPIVACAINE (ROPIVACAINE) [Suspect]
     Indication: PROCEDURAL PAIN
     Dosage: SEE IMAGE
  3. PROPOFOL [Suspect]
     Indication: ANAESTHESIA
     Dosage: 1.5 MG/KG, IV
     Route: 042
  4. VECURONIUM (VECURONIUM) [Suspect]
     Indication: INTUBATION
     Dosage: 0.15 MG/KG, IV
     Route: 042
  5. ATROPINE SULFATE [Suspect]
     Indication: MUSCLE RELAXANT THERAPY
     Dosage: SEE IMAGE
  6. ATROPINE SULFATE [Suspect]
     Indication: PREMEDICATION
     Dosage: SEE IMAGE
  7. HYDROXYZINE [Suspect]
     Indication: PREMEDICATION
     Dosage: 25 MG, IM
     Route: 030
  8. NEOSTIGMINE (NEOSTIGMINE) [Suspect]
     Indication: MUSCLE RELAXANT THERAPY
     Dosage: 2 MG
  9. ISOFLURANE [Suspect]
     Indication: MAINTENANCE OF ANAESTHESIA
     Dosage: 0.5-1.0 % (SEE TEXT),
  10. OXYGEN (OXYGEN) [Suspect]
     Indication: MAINTENANCE OF ANAESTHESIA
     Dosage: 50-60% (SEE TEXT),
  11. NITROUS OXIDE (NITROUS OXIDE) [Suspect]
     Indication: MAINTENANCE OF ANAESTHESIA

REACTIONS (1)
  - PNEUMONIA [None]
